FAERS Safety Report 6191662-X (Version None)
Quarter: 2009Q2

REPORT INFORMATION
  Report Type: 
  Country: None (occurrence: None)
  Receive Date: 20090513
  Receipt Date: 20090429
  Transmission Date: 20091009
  Serious: Yes (Other)
  Sender: FDA-Public Use
  Company Number: 1-18283934

PATIENT
  Sex: Female

DRUGS (1)
  1. ZIANA [Suspect]
     Indication: ACNE
     Dosage: AT BEDTIME, TOPICAL
     Route: 061
     Dates: start: 20080901

REACTIONS (3)
  - ABORTION SPONTANEOUS [None]
  - COLITIS [None]
  - DRUG EXPOSURE DURING PREGNANCY [None]
